FAERS Safety Report 11751655 (Version 9)
Quarter: 2016Q3

REPORT INFORMATION
  Report Type: Spontaneous
  Country: US (occurrence: US)
  Receive Date: 20151118
  Receipt Date: 20160906
  Transmission Date: 20161109
  Serious: Yes (Hospitalization, Disabling, Other)
  Sender: FDA-Public Use
  Company Number: US-009507513-1511USA008393

PATIENT
  Sex: Female

DRUGS (3)
  1. ALENDRONATE SODIUM. [Suspect]
     Active Substance: ALENDRONATE SODIUM
     Indication: OSTEOPOROSIS
     Dosage: 70 MG, QW
     Route: 048
     Dates: start: 20081108, end: 20110715
  2. FOSAMAX [Suspect]
     Active Substance: ALENDRONATE SODIUM
     Dosage: 70 MG, QW
     Route: 048
     Dates: start: 20061127, end: 20070301
  3. FOSAMAX [Suspect]
     Active Substance: ALENDRONATE SODIUM
     Indication: OSTEOPOROSIS
     Dosage: UNK
     Route: 048
     Dates: start: 199607, end: 20060930

REACTIONS (30)
  - Hip arthroplasty [Unknown]
  - Vitamin D deficiency [Unknown]
  - Bundle branch block left [Unknown]
  - Muscular weakness [Unknown]
  - Blood cholesterol increased [Unknown]
  - Nephrolithiasis [Unknown]
  - Defect conduction intraventricular [Unknown]
  - Trigger finger [Unknown]
  - Osteoporosis [Not Recovered/Not Resolved]
  - Contusion [Unknown]
  - Adverse drug reaction [Unknown]
  - Haemorrhagic anaemia [Unknown]
  - Arthralgia [Unknown]
  - Myocardial infarction [Unknown]
  - Hypothyroidism [Unknown]
  - Sleep apnoea syndrome [Unknown]
  - Obesity [Unknown]
  - Chest pain [Unknown]
  - Uterine leiomyoma [Unknown]
  - Atrial fibrillation [Unknown]
  - Electrocardiogram QRS complex prolonged [Unknown]
  - Arthralgia [Unknown]
  - Cholecystectomy [Unknown]
  - Humerus fracture [Unknown]
  - Femur fracture [Not Recovered/Not Resolved]
  - Femur fracture [Not Recovered/Not Resolved]
  - Hyperglycaemia [Unknown]
  - Arthropathy [Unknown]
  - Osteoarthritis [Not Recovered/Not Resolved]
  - Fall [Unknown]

NARRATIVE: CASE EVENT DATE: 2003
